FAERS Safety Report 7469517-X (Version None)
Quarter: 2011Q2

REPORT INFORMATION
  Report Type: 
  Country: None (occurrence: None)
  Receive Date: 20110510
  Receipt Date: 20110426
  Transmission Date: 20111010
  Serious: Yes (Other)
  Sender: FDA-Public Use
  Company Number: PHHY2011CA34132

PATIENT
  Sex: Male

DRUGS (1)
  1. CLOZARIL [Suspect]
     Dates: start: 19970218

REACTIONS (7)
  - HAEMOGLOBIN ABNORMAL [None]
  - LETHARGY [None]
  - DIABETES MELLITUS [None]
  - WEIGHT DECREASED [None]
  - NASOPHARYNGITIS [None]
  - RED BLOOD CELL COUNT DECREASED [None]
  - PLATELET DISORDER [None]
